FAERS Safety Report 18722036 (Version 19)
Quarter: 2022Q4

REPORT INFORMATION
  Report Type: Spontaneous
  Country: GB (occurrence: GB)
  Receive Date: 20210111
  Receipt Date: 20221224
  Transmission Date: 20230113
  Serious: Yes (Hospitalization, Other)
  Sender: FDA-Public Use
  Company Number: GB-ROCHE-1753955

PATIENT
  Age: 40 Year
  Sex: Female

DRUGS (20)
  1. TAMOXIFEN [Suspect]
     Active Substance: TAMOXIFEN
     Indication: Breast cancer metastatic
     Dosage: UNK, QD (1X/DAY)
     Route: 048
     Dates: start: 201603
  2. DOCETAXEL [Suspect]
     Active Substance: DOCETAXEL
     Indication: Breast cancer metastatic
     Dosage: 140 MILLIGRAM, CYCLICAL (140 MG, ONCE IN 2 WEEKS)
     Route: 042
     Dates: start: 20160324, end: 20160526
  3. DOCETAXEL [Suspect]
     Active Substance: DOCETAXEL
     Dosage: 110 MILLIGRAM, CYCLICAL (110 MG, CYCLIC EVERY 2 WEEKS (THERAPY DISCONTINUED: PLANNED NUMBER OF CYCLE
     Route: 042
     Dates: start: 20160526, end: 20160707
  4. PERTUZUMAB [Suspect]
     Active Substance: PERTUZUMAB
     Indication: Breast cancer metastatic
     Dosage: 1260 MILLIGRAM, 1 WEEK (420 MILLIGRAM, 3XW)
     Route: 042
  5. PERTUZUMAB [Suspect]
     Active Substance: PERTUZUMAB
     Dosage: 840 MILLIGRAM, ONCE A DAY(LOADING DOSE:PLANNED NUMBER OF CYCLES COMPLETED)
     Route: 042
     Dates: start: 20160324, end: 20160324
  6. PERTUZUMAB [Suspect]
     Active Substance: PERTUZUMAB
     Dosage: 420 MILLIGRAM (EVERY 3 WEEK)
     Route: 042
     Dates: start: 20160413
  7. TRASTUZUMAB [Suspect]
     Active Substance: TRASTUZUMAB
     Indication: Breast cancer metastatic
     Dosage: 651 MILLIGRAM EVERY 2 WEEK (, (651 MG, 1X/DAY, LOADING DOSEPLANNED NUMBER )
     Route: 042
     Dates: start: 20140323
  8. TRASTUZUMAB [Suspect]
     Active Substance: TRASTUZUMAB
     Dosage: 651 MILLIGRAM (651 MG, EVERY 3 WEEKS, LOADING DOSEPLANNED NUMBER OF CYCLES COMPLETED; CUMULATIVE DOS
     Route: 041
     Dates: start: 20160323, end: 20160323
  9. TRASTUZUMAB [Suspect]
     Active Substance: TRASTUZUMAB
     Dosage: 483 MG, CYCLIC (483 MG, EVERY 3 WEEKS), DOSE FORM: 230 (CUMULATIVE DOSE TO FIRST REACTION: 459.042MG
     Route: 042
     Dates: start: 20160413
  10. CITALOPRAM [Concomitant]
     Active Substance: CITALOPRAM HYDROBROMIDE
     Indication: Thrombosis prophylaxis
     Dosage: 20 MILLIGRAM, ONCE A DAY ((20 MG, 1X/DAY) (PHARMACEUTICAL DOSE FORM :245)
     Route: 048
     Dates: start: 201003
  11. DALTEPARIN [Concomitant]
     Active Substance: DALTEPARIN
     Indication: Thrombosis prophylaxis
     Dosage: 120
     Route: 065
  12. DALTEPARIN [Concomitant]
     Active Substance: DALTEPARIN
     Dosage: 5000 INTERNATIONAL UNIT, ONCE A DAY5000 IU, QD (5000 IU, 1X/DAY), DOSE FORM: 120
     Route: 058
     Dates: start: 20160802
  13. DENOSUMAB [Concomitant]
     Active Substance: DENOSUMAB
     Indication: Breast cancer metastatic
     Dosage: 120 MILLIGRAM (120 MILLIGRAM, 28 DAY Q28D)
     Route: 058
  14. DENOSUMAB [Concomitant]
     Active Substance: DENOSUMAB
     Indication: Metastases to bone
     Dosage: 120 MILLIGRAM, ONCE A DAY(120 MILLIGRAM, 28 DAY Q28D, DOSE FORM: 120)
     Route: 058
     Dates: start: 20160323
  15. DEXAMETHASONE [Concomitant]
     Active Substance: DEXAMETHASONE
     Indication: Metastases to bone
     Dosage: UNK (120)
     Route: 065
  16. DEXAMETHASONE [Concomitant]
     Active Substance: DEXAMETHASONE
     Indication: Breast cancer metastatic
     Dosage: (CUMULATIVE DOSE TO FIRST REACTION: 0.95238096 MG)
     Route: 042
     Dates: start: 20160324
  17. DEXAMETHASONE [Concomitant]
     Active Substance: DEXAMETHASONE
     Dosage: 20 MILLIGRAM EVERY 3 WEEK, Q3W
     Route: 042
     Dates: start: 20160324
  18. DEXAMETHASONE [Concomitant]
     Active Substance: DEXAMETHASONE
     Dosage: 6 MILLIGRAM , EVERY 3 WEEK, DOSE FORM: 120)
     Route: 042
     Dates: start: 20191113
  19. OMEPRAZOLE [Concomitant]
     Active Substance: OMEPRAZOLE
     Indication: Dyspepsia
     Dosage: 20 MILLIGRAM, ONCE A DAY
     Route: 048
     Dates: start: 20170727
  20. ACETAMINOPHEN [Concomitant]
     Active Substance: ACETAMINOPHEN
     Indication: Product used for unknown indication
     Dosage: UNK
     Route: 065

REACTIONS (9)
  - Atrial thrombosis [Recovered/Resolved]
  - Atrophic vulvovaginitis [Recovered/Resolved]
  - Diarrhoea [Not Recovered/Not Resolved]
  - Fatigue [Recovered/Resolved]
  - Infection [Recovered/Resolved]
  - Influenza like illness [Recovered/Resolved]
  - Joint stiffness [Recovered/Resolved]
  - Musculoskeletal stiffness [Recovered/Resolved]
  - Off label use [Unknown]

NARRATIVE: CASE EVENT DATE: 20160324
